FAERS Safety Report 5562159-2 (Version None)
Quarter: 2007Q4

REPORT INFORMATION
  Report Type: 
  Country: None (occurrence: None)
  Receive Date: 20071215
  Receipt Date: 20070927
  Transmission Date: 20080405
  Serious: No
  Sender: FDA-Public Use
  Company Number: US-AMGEN-KDL245443

PATIENT
  Sex: Female

DRUGS (3)
  1. ENBREL [Suspect]
     Indication: RHEUMATOID ARTHRITIS
     Route: 058
     Dates: start: 19990701
  2. ENBREL [Suspect]
     Indication: PSORIASIS
  3. METHOTREXATE [Concomitant]
     Route: 048
     Dates: start: 19960101

REACTIONS (7)
  - ABDOMINAL PAIN UPPER [None]
  - CHOLELITHIASIS [None]
  - FLATULENCE [None]
  - IRRITABLE BOWEL SYNDROME [None]
  - PSORIASIS [None]
  - RHEUMATOID ARTHRITIS [None]
  - SINUSITIS [None]
